FAERS Safety Report 10541185 (Version 1)
Quarter: 2014Q4

REPORT INFORMATION
  Report Type: Spontaneous
  Country: KR (occurrence: KR)
  Receive Date: 20141024
  Receipt Date: 20141024
  Transmission Date: 20150529
  Serious: Yes (Death, Hospitalization)
  Sender: FDA-Public Use
  Company Number: KR-OTSUKA-US-2014-13242

PATIENT

DRUGS (16)
  1. DACOGEN [Suspect]
     Active Substance: DECITABINE
     Dosage: 15.2 MG/M2, UNKNOWN
     Route: 042
     Dates: start: 20140609, end: 20140613
  2. NOXAFIL [Concomitant]
     Active Substance: POSACONAZOLE
     Dosage: 5 ML MILLILITRE(S), UNKNOWN
     Route: 065
     Dates: start: 20131105, end: 20140502
  3. CARVEDILOL. [Concomitant]
     Active Substance: CARVEDILOL
     Indication: HYPERTENSION
     Dosage: 0.25 T, DAILY DOSE
     Route: 065
     Dates: start: 20131104, end: 20140722
  4. DACOGEN [Suspect]
     Active Substance: DECITABINE
     Indication: MYELODYSPLASTIC SYNDROME
     Dosage: 19.95 MG/M2, UNKNOWN
     Route: 042
     Dates: start: 20131105, end: 20131109
  5. PREDNISOLONE. [Concomitant]
     Active Substance: PREDNISOLONE
     Indication: MYELODYSPLASTIC SYNDROME
     Dosage: 7.5 MG MILLIGRAM(S), UNKNOWN
     Route: 065
     Dates: start: 20131104, end: 20140317
  6. DACOGEN [Suspect]
     Active Substance: DECITABINE
     Dosage: 14.8 MG/M2, UNKNOWN
     Route: 042
     Dates: start: 20131217, end: 20131221
  7. DACOGEN [Suspect]
     Active Substance: DECITABINE
     Dosage: 15 MG/M2, UNKNOWN
     Route: 042
     Dates: start: 20140421, end: 20140425
  8. DEFERASIROX [Concomitant]
     Active Substance: DEFERASIROX
     Indication: MYELODYSPLASTIC SYNDROME
     Dosage: 2 T, DAILY DOSE
     Route: 065
     Dates: start: 20131104, end: 20140722
  9. DACOGEN [Suspect]
     Active Substance: DECITABINE
     Dosage: 20 MG/M2, UNKNOWN
     Route: 042
     Dates: start: 20140317, end: 20140321
  10. VACRAX [Concomitant]
     Indication: VIRAL INFECTION
     Dosage: 400 MG MILLIGRAM(S), UNKNOWN
     Route: 065
  11. NOXAFIL [Concomitant]
     Active Substance: POSACONAZOLE
     Indication: FUNGAL INFECTION
     Dosage: UNK, UNKNOWN
     Route: 065
  12. SEPTRIN [Concomitant]
     Active Substance: SULFAMETHOXAZOLE\TRIMETHOPRIM
     Indication: INFECTION
     Dosage: 1 T, DAILY DOSE
     Route: 065
     Dates: start: 20131105, end: 20140620
  13. CRAVIT [Concomitant]
     Active Substance: LEVOFLOXACIN
     Indication: PRODUCT USED FOR UNKNOWN INDICATION
     Dosage: 500 MG MILLIGRAM(S), UNKNOWN
     Route: 065
     Dates: start: 20131105, end: 20140502
  14. DACOGEN [Suspect]
     Active Substance: DECITABINE
     Dosage: 20 MG/M2, UNKNOWN
     Route: 042
     Dates: start: 20140205, end: 20140209
  15. FUROSEMIDE. [Concomitant]
     Active Substance: FUROSEMIDE
     Indication: CARDIAC FAILURE
     Dosage: 1 T, DAILY DOSE
     Route: 065
     Dates: start: 20131104, end: 20140722
  16. DILTIAZEM HYDROCHLORIDE. [Concomitant]
     Active Substance: DILTIAZEM HYDROCHLORIDE
     Indication: CARDIAC FAILURE
     Dosage: 30 MG MILLIGRAM(S), UNKNOWN
     Route: 065
     Dates: start: 20140226, end: 20140722

REACTIONS (2)
  - Dyspnoea [None]
  - Sepsis [Fatal]

NARRATIVE: CASE EVENT DATE: 20140719
